FAERS Safety Report 7187088-2 (Version None)
Quarter: 2010Q4

REPORT INFORMATION
  Report Type: 
  Country: None (occurrence: None)
  Receive Date: 20101222
  Receipt Date: 20101220
  Transmission Date: 20110411
  Serious: Yes (Hospitalization)
  Sender: FDA-Public Use
  Company Number: US-AMGEN-USASP2010010069

PATIENT

DRUGS (12)
  1. PROLIA [Suspect]
     Indication: OSTEOPOROSIS POSTMENOPAUSAL
     Dosage: 60 MG, Q6MO
     Dates: start: 20101101
  2. VITAMIN A [Concomitant]
  3. BYSTOLIC [Concomitant]
  4. METFORMIN HCL [Concomitant]
  5. LISINOPRIL [Concomitant]
  6. PRAVACHOL [Concomitant]
  7. COUMADIN [Concomitant]
  8. COUMADIN [Concomitant]
  9. NEXIUM [Concomitant]
  10. SYNTHROID [Concomitant]
  11. ARICEPT                            /01318901/ [Concomitant]
  12. CARTIA XT [Concomitant]

REACTIONS (2)
  - DEPRESSION [None]
  - URINARY TRACT INFECTION [None]
